FAERS Safety Report 7277740-2 (Version None)
Quarter: 2010Q4

REPORT INFORMATION
  Report Type: 
  Country: None (occurrence: None)
  Receive Date: 20101215
  Receipt Date: 20100825
  Transmission Date: 20110411
  Serious: Yes (Other)
  Sender: FDA-Public Use
  Company Number: DSA_43800_2010

PATIENT
  Sex: Female

DRUGS (6)
  1. XENAZINE [Suspect]
     Indication: TIC
     Dosage: (100 MG, 25 MG TABLET IN AM, 25 MG TABLET IN AFTERNOON, TWO 25 MG TABLETS IN EVENING ORAL)
     Route: 048
     Dates: start: 20100630
  2. ZYRTEC [Concomitant]
  3. ATIVAN [Concomitant]
  4. LEXAPRO [Concomitant]
  5. KLONOPIN [Concomitant]
  6. EFFEXOR [Concomitant]

REACTIONS (3)
  - DEPRESSION [None]
  - SUICIDAL BEHAVIOUR [None]
  - SUICIDAL IDEATION [None]
